FAERS Safety Report 9434659 (Version 1)
Quarter: 2013Q3

REPORT INFORMATION
  Report Type: Spontaneous
  Country: CA (occurrence: CA)
  Receive Date: 20130801
  Receipt Date: 20130801
  Transmission Date: 20140515
  Serious: Yes (Hospitalization, Other)
  Sender: FDA-Public Use
  Company Number: CA-AMGEN-CANSP2013053176

PATIENT
  Age: 45 Year
  Sex: Female

DRUGS (1)
  1. ARANESP [Suspect]
     Indication: RENAL FAILURE CHRONIC
     Dosage: 30 MUG, UNK
     Route: 065
     Dates: start: 20100126

REACTIONS (2)
  - Hospitalisation [Not Recovered/Not Resolved]
  - Dialysis [Not Recovered/Not Resolved]
